FAERS Safety Report 8391800-4 (Version None)
Quarter: 2012Q2

REPORT INFORMATION
  Report Type: 
  Country: None (occurrence: None)
  Receive Date: 20120529
  Receipt Date: 20120528
  Transmission Date: 20120825
  Serious: Yes (Hospitalization)
  Sender: FDA-Public Use
  Company Number: US-GLAXOSMITHKLINE-A0822172A

PATIENT
  Age: 63 Year
  Sex: Male
  Weight: 102.7 kg

DRUGS (7)
  1. AVANDIA [Suspect]
     Indication: TYPE 2 DIABETES MELLITUS
     Dosage: 4MG TWICE PER DAY
     Route: 048
     Dates: start: 20020502, end: 20051201
  2. ALBUTEROL [Concomitant]
  3. METFORMIN HCL [Concomitant]
  4. ALTACE [Concomitant]
  5. PROTONIX [Concomitant]
  6. VIAGRA [Concomitant]
  7. ZOCOR [Concomitant]

REACTIONS (2)
  - CEREBROVASCULAR ACCIDENT [None]
  - CORONARY ARTERY DISEASE [None]
